FAERS Safety Report 5563418-X (Version None)
Quarter: 2007Q4

REPORT INFORMATION
  Report Type: 
  Country: None (occurrence: None)
  Receive Date: 20071217
  Receipt Date: 20070521
  Transmission Date: 20080405
  Serious: Yes (Hospitalization)
  Sender: FDA-Public Use
  Company Number: US-ASTRAZENECA-2007UW12445

PATIENT
  Age: 49 Year
  Sex: Male
  Weight: 96.2 kg

DRUGS (7)
  1. CRESTOR [Suspect]
     Indication: BLOOD CHOLESTEROL INCREASED
     Route: 048
     Dates: start: 20060901, end: 20070517
  2. CRESTOR [Suspect]
     Route: 048
     Dates: start: 20070518
  3. ZETIA [Concomitant]
  4. SYNTHROID [Concomitant]
  5. LASIX [Concomitant]
  6. LOPRESSOR [Concomitant]
  7. ASPIRIN [Concomitant]

REACTIONS (3)
  - EPISTAXIS [None]
  - MUSCULOSKELETAL CHEST PAIN [None]
  - RHABDOMYOLYSIS [None]
